FAERS Safety Report 23714574 (Version 3)
Quarter: 2024Q3

REPORT INFORMATION
  Report Type: Spontaneous
  Country: CZ (occurrence: CZ)
  Receive Date: 20240406
  Receipt Date: 20240814
  Transmission Date: 20241017
  Serious: Yes (Hospitalization, Other)
  Sender: CELLTRION
  Company Number: CZ-CELLTRION INC.-2024CZ007870

PATIENT

DRUGS (15)
  1. INFLIXIMAB [Suspect]
     Active Substance: INFLIXIMAB
     Indication: Colitis ulcerative
     Dosage: 10 MG/KG
     Route: 042
     Dates: start: 20230619
  2. PENTASA [Concomitant]
     Active Substance: MESALAMINE
     Dosage: 2G SACHET, 2 SACHETS AT 07
  3. FOLIC ACID [Concomitant]
     Active Substance: FOLIC ACID
     Dosage: 10MG TBL., 1 TABLET AT 17
  4. CALCIUM CARBONATE\CHOLECALCIFEROL [Concomitant]
     Active Substance: CALCIUM CARBONATE\CHOLECALCIFEROL
     Dosage: 600 MG/400 IU TBL., 2 TABLETS AT 11
  5. TRAZODONE HYDROCHLORIDE [Concomitant]
     Active Substance: TRAZODONE HYDROCHLORIDE
     Indication: Insomnia
     Dosage: 75MG TABLET 2/3 OF A TABLET AT 9 P.M.
  6. METAMIZOLE [Concomitant]
     Active Substance: METAMIZOLE
     Indication: Pain
     Dosage: 2ML/1G TO 20ML F1/1 SLOW IV FOR PAIN VAS 3-5, MAX. 4 TIMES A DAY, MIN. INTERVAL 6 HOURS
     Route: 042
  7. TRAMADOL [Concomitant]
     Active Substance: TRAMADOL\TRAMADOL HYDROCHLORIDE
     Indication: Pain
     Dosage: 100MG TO 100ML F1/1 I.V. FOR PAIN VAS 6-7, ADMINISTRATION TIME 20 MIN., MAX. 3 TIMES A DAY, MIN. INT
     Route: 042
  8. PIRITRAMIDE [Concomitant]
     Active Substance: PIRITRAMIDE
     Indication: Pain
     Dosage: 100MG TO 100ML F1/1 I.V. FOR PAIN VAS 6-7, ADMINISTRATION TIME 20 MIN., MAX. 3 TIMES A DAY, MIN. INT
     Route: 042
  9. SOLU-MEDROL [Concomitant]
     Active Substance: METHYLPREDNISOLONE SODIUM SUCCINATE
     Dosage: 125 MG 1/2 AMP. I.E. 62.5 MG IN 100 ML F1/1 I.V. AT 07 A.M., ADMINISTRATION TIME 30 MIN.
     Route: 042
  10. METRONIDAZOLE [Concomitant]
     Active Substance: METRONIDAZOLE
     Dosage: DAY 6 METRONIDAZOLE INJ. 100 ML/500 MG I.V. AT 16 - 24 - 08 H., ADMINISTRATION TIME 30 MIN.
     Route: 042
  11. ELECTROLYTES NOS [Concomitant]
     Active Substance: ELECTROLYTES NOS
     Dosage: 1000ML, 100ML/HOUR
  12. AMINO ACIDS\DEXTROSE\ELECTROLYTES NOS\SOYBEAN OIL [Concomitant]
     Active Substance: AMINO ACIDS\DEXTROSE\ELECTROLYTES NOS\SOYBEAN OIL
     Dosage: 1820ML INF. EML.
  13. ELECTROLYTES NOS\MINERALS [Concomitant]
     Active Substance: ELECTROLYTES NOS\MINERALS
     Dosage: 1 AMP.
  14. VITAMINS [Concomitant]
     Active Substance: VITAMINS
     Dosage: 1 AMP.
  15. ERGOCALCIFEROL\PHYTONADIONE\TOCOPHEROL\VITAMIN A PALMITATE [Concomitant]
     Active Substance: ERGOCALCIFEROL\PHYTONADIONE\TOCOPHEROL\VITAMIN A PALMITATE
     Dosage: 1 AMP. I.V. CONTINUOUSLY 80ML/H
     Route: 042

REACTIONS (3)
  - Myopericarditis [Recovered/Resolved]
  - Infection [Recovered/Resolved]
  - Overdose [Unknown]

NARRATIVE: CASE EVENT DATE: 20230623
